FAERS Safety Report 5514311-X (Version None)
Quarter: 2007Q4

REPORT INFORMATION
  Report Type: 
  Country: None (occurrence: None)
  Receive Date: 20071113
  Receipt Date: 20070409
  Transmission Date: 20080405
  Serious: No
  Sender: FDA-Public Use
  Company Number: A0646296A

PATIENT
  Age: 70 Year
  Sex: Female

DRUGS (9)
  1. COREG [Suspect]
     Indication: HYPERTENSION
     Dosage: 6.25MG VARIABLE DOSE
     Route: 048
     Dates: start: 20050101
  2. FLECAINIDE ACETATE [Concomitant]
  3. METOPROLOL TARTRATE [Concomitant]
  4. LASIX [Concomitant]
  5. POTASSIUM CHLORIDE [Concomitant]
  6. PRINIVIL [Concomitant]
  7. ZOCOR [Concomitant]
  8. VITAMIN B-12 [Concomitant]
  9. MOTRIN [Concomitant]

REACTIONS (2)
  - DYSPNOEA [None]
  - HEART RATE IRREGULAR [None]
